FAERS Safety Report 16074844 (Version 1)
Quarter: 2019Q1

REPORT INFORMATION
  Report Type: Spontaneous
  Country: US (occurrence: US)
  Receive Date: 20190314
  Receipt Date: 20190314
  Transmission Date: 20190418
  Serious: Yes (Other)
  Sender: FDA-Public Use
  Company Number: PHEH2019US010879

PATIENT
  Sex: Male

DRUGS (1)
  1. DUREZOL [Suspect]
     Active Substance: DIFLUPREDNATE
     Indication: RETINAL OEDEMA
     Dosage: 3 GTT, TID
     Route: 047
     Dates: start: 20190228, end: 20190308

REACTIONS (3)
  - Syncope [Unknown]
  - Blood pressure increased [Unknown]
  - Constipation [Unknown]
